FAERS Safety Report 20613600 (Version 1)
Quarter: 2022Q1

REPORT INFORMATION
  Report Type: Spontaneous
  Country: US (occurrence: US)
  Receive Date: 20220319
  Receipt Date: 20220319
  Transmission Date: 20220423
  Serious: No
  Sender: FDA-Public Use
  Company Number: US-AUROBINDO-AUR-APL-2021-016227

PATIENT
  Age: 79 Year
  Sex: Female
  Weight: 83.4 kg

DRUGS (2)
  1. GABAPENTIN [Suspect]
     Active Substance: GABAPENTIN
     Indication: Restless legs syndrome
     Dosage: 4 DOSAGE FORM, 2 CAPSULES IN THE LATE AFTERNOON AND 2 CAPSULES BEFORE BED TIME
     Route: 048
     Dates: start: 20210414, end: 20210414
  2. PRAMIPEXOLE [Concomitant]
     Active Substance: PRAMIPEXOLE
     Indication: Product used for unknown indication
     Dosage: 2 DOSAGE FORM, BED TIME
     Route: 065

REACTIONS (3)
  - Restless legs syndrome [Unknown]
  - Drug ineffective [Unknown]
  - Product substitution issue [Unknown]

NARRATIVE: CASE EVENT DATE: 20210114
